FAERS Safety Report 7056041-1 (Version None)
Quarter: 2010Q4

REPORT INFORMATION
  Report Type: 
  Country: None (occurrence: None)
  Receive Date: 20101021
  Receipt Date: 20101013
  Transmission Date: 20110411
  Serious: Yes (Hospitalization)
  Sender: FDA-Public Use
  Company Number: B0677420A

PATIENT
  Sex: Male

DRUGS (5)
  1. VALTREX [Suspect]
     Indication: PRODUCT USED FOR UNKNOWN INDICATION
     Dosage: 1000MG PER DAY
     Route: 048
     Dates: start: 20100928, end: 20100929
  2. ZYLORIC [Concomitant]
     Route: 048
  3. ADALAT [Concomitant]
     Route: 048
  4. DIOVAN [Concomitant]
     Route: 048
  5. FUROSEMIDE [Concomitant]
     Route: 048

REACTIONS (1)
  - MENTAL DISORDER [None]
